FAERS Safety Report 13196248 (Version 2)
Quarter: 2017Q1

REPORT INFORMATION
  Report Type: Spontaneous
  Country: US (occurrence: US)
  Receive Date: 20170208
  Receipt Date: 20170220
  Transmission Date: 20170428
  Serious: No
  Sender: FDA-Public Use
  Company Number: US-PFIZER INC-2017047577

PATIENT
  Age: 62 Year
  Sex: Female
  Weight: 97.52 kg

DRUGS (4)
  1. FLUCONAZOLE. [Suspect]
     Active Substance: FLUCONAZOLE
     Indication: GRAFT VERSUS HOST DISEASE IN GASTROINTESTINAL TRACT
     Dosage: UNK
     Route: 065
     Dates: start: 201612
  2. NYSTATIN. [Suspect]
     Active Substance: NYSTATIN
     Indication: GRAFT VERSUS HOST DISEASE IN GASTROINTESTINAL TRACT
  3. NYSTATIN. [Suspect]
     Active Substance: NYSTATIN
     Indication: DRY MOUTH
     Dosage: UNK
     Route: 065
     Dates: start: 201612
  4. FLUCONAZOLE. [Suspect]
     Active Substance: FLUCONAZOLE
     Indication: DRY MOUTH
     Dosage: UNK
     Dates: start: 201612

REACTIONS (4)
  - Oral mucosal eruption [Unknown]
  - Drug ineffective [Unknown]
  - Oral candidiasis [Unknown]
  - Hyperlipidaemia [Unknown]

NARRATIVE: CASE EVENT DATE: 201612
